FAERS Safety Report 13589657 (Version 1)
Quarter: 2017Q2

REPORT INFORMATION
  Report Type: Report from Study
  Country: None (occurrence: US)
  Receive Date: 20170529
  Receipt Date: 20170529
  Transmission Date: 20170830
  Serious: Yes (Hospitalization)
  Sender: FDA-Public Use
  Company Number: US-ABBVIE-16K-163-1809550-00

PATIENT
  Sex: Male

DRUGS (3)
  1. HUMIRA [Suspect]
     Active Substance: ADALIMUMAB
     Route: 058
     Dates: start: 20161213, end: 20161213
  2. HUMIRA [Suspect]
     Active Substance: ADALIMUMAB
     Route: 058
     Dates: start: 20161226, end: 201704
  3. HUMIRA [Suspect]
     Active Substance: ADALIMUMAB
     Indication: COLITIS ULCERATIVE
     Route: 058
     Dates: start: 20161128, end: 20161128

REACTIONS (14)
  - Diarrhoea [Unknown]
  - Pyrexia [Unknown]
  - Frequent bowel movements [Unknown]
  - Insomnia [Unknown]
  - Abdominal pain upper [Not Recovered/Not Resolved]
  - Drug ineffective [Unknown]
  - Malaise [Unknown]
  - Decreased appetite [Unknown]
  - Weight decreased [Unknown]
  - Gastrointestinal oedema [Unknown]
  - Rectal haemorrhage [Not Recovered/Not Resolved]
  - Loss of personal independence in daily activities [Unknown]
  - Anxiety [Unknown]
  - Haematochezia [Unknown]

NARRATIVE: CASE EVENT DATE: 2016
